FAERS Safety Report 5596713-9 (Version None)
Quarter: 2008Q1

REPORT INFORMATION
  Report Type: 
  Country: None (occurrence: None)
  Receive Date: 20080118
  Receipt Date: 20080109
  Transmission Date: 20080703
  Serious: Yes (Death)
  Sender: FDA-Public Use
  Company Number: US-PFIZER INC-2008003021

PATIENT
  Age: 21 Year
  Sex: Male

DRUGS (7)
  1. ALPROSTADIL POWDER, STERILE [Suspect]
  2. ISOFLURANE [Suspect]
  3. SUCCINYLCHOLINE CHLORIDE [Suspect]
  4. NITRIC OXIDE [Suspect]
  5. PROPOFOL [Suspect]
  6. FENTANYL [Suspect]
  7. PAPAVERINE [Concomitant]

REACTIONS (3)
  - CARDIAC ARREST [None]
  - DEATH [None]
  - RESPIRATORY ARREST [None]
